FAERS Safety Report 5573156-5 (Version None)
Quarter: 2007Q4

REPORT INFORMATION
  Report Type: 
  Country: None (occurrence: None)
  Receive Date: 20071220
  Receipt Date: 20071212
  Transmission Date: 20080405
  Serious: Yes (Hospitalization)
  Sender: FDA-Public Use
  Company Number: WAES 0403USA02322

PATIENT
  Age: 34 Year
  Sex: Female

DRUGS (37)
  1. CRIXIVAN [Suspect]
     Indication: HIV INFECTION
     Dosage: 2.4 GM/DAILY PO; 1.2 GM/DAILY PO
     Route: 048
     Dates: start: 19980831, end: 19980909
  2. CRIXIVAN [Suspect]
     Indication: HIV INFECTION
     Dosage: 2.4 GM/DAILY PO; 1.2 GM/DAILY PO
     Route: 048
     Dates: start: 20000310, end: 20001027
  3. EFAVIRENZ [Suspect]
     Indication: HIV INFECTION
     Dosage: 600 MG/DAILY PO; 600 MG/DAILY PO
     Route: 048
     Dates: start: 20000130, end: 20001027
  4. EFAVIRENZ [Suspect]
     Indication: HIV INFECTION
     Dosage: 600 MG/DAILY PO; 600 MG/DAILY PO
     Route: 048
     Dates: start: 20010130
  5. CAP RITONAVIR [Suspect]
     Indication: HIV INFECTION
     Dosage: 400 MG/DAILY PO
     Route: 048
     Dates: start: 20000310, end: 20001027
  6. ABACAVIR SULFATE [Suspect]
     Indication: HIV INFECTION
     Dosage: 300 MG/BID PO
     Route: 048
     Dates: start: 20010130
  7. CAP LOPINAVIR (+) RITONAVIR [Suspect]
     Indication: HIV INFECTION
     Dosage: 6 CAPSULE/DAILY PO
     Route: 048
     Dates: start: 20010130
  8. CLARITHROMYCIN [Suspect]
     Indication: MYCOBACTERIUM AVIUM COMPLEX INFECTION
     Dosage: 200 MG/TID PO; 800 MG/DAILY PO
     Route: 048
     Dates: start: 19981008, end: 19981201
  9. CLARITHROMYCIN [Suspect]
     Indication: MYCOBACTERIUM AVIUM COMPLEX INFECTION
     Dosage: 200 MG/TID PO; 800 MG/DAILY PO
     Route: 048
     Dates: start: 20001028
  10. ETHAMBUTOL HYDROCHLORIDE [Suspect]
     Indication: MYCOBACTERIUM AVIUM COMPLEX INFECTION
     Dosage: 500 MG/DAILY PO; 500 MG/DAILY PO; 250 MG/BID PO
     Route: 048
     Dates: start: 19981025, end: 19981201
  11. ETHAMBUTOL HYDROCHLORIDE [Suspect]
     Indication: MYCOBACTERIUM AVIUM COMPLEX INFECTION
     Dosage: 500 MG/DAILY PO; 500 MG/DAILY PO; 250 MG/BID PO
     Route: 048
     Dates: start: 19981212, end: 19990614
  12. ETHAMBUTOL HYDROCHLORIDE [Suspect]
     Indication: MYCOBACTERIUM AVIUM COMPLEX INFECTION
     Dosage: 500 MG/DAILY PO; 500 MG/DAILY PO; 250 MG/BID PO
     Route: 048
     Dates: start: 20001028, end: 20010101
  13. SULFAMETHOXAZOLE AND TRIMETHOPRIM [Suspect]
     Indication: ALLERGENIC DESENSITISATION PROCEDURE
     Dosage: .06 GM/DAILY PO; .7 GM/DAILY PO; 0.8 GM/1X PO; 960 MG/AM PO; 480 MG/PM PO; 960 MG/TID PO; 480 MG/DAI
     Route: 048
     Dates: start: 20001219, end: 20001219
  14. SULFAMETHOXAZOLE AND TRIMETHOPRIM [Suspect]
     Indication: ALLERGENIC DESENSITISATION PROCEDURE
     Dosage: .06 GM/DAILY PO; .7 GM/DAILY PO; 0.8 GM/1X PO; 960 MG/AM PO; 480 MG/PM PO; 960 MG/TID PO; 480 MG/DAI
     Route: 048
     Dates: start: 20001220, end: 20001220
  15. SULFAMETHOXAZOLE AND TRIMETHOPRIM [Suspect]
     Indication: ALLERGENIC DESENSITISATION PROCEDURE
     Dosage: .06 GM/DAILY PO; .7 GM/DAILY PO; 0.8 GM/1X PO; 960 MG/AM PO; 480 MG/PM PO; 960 MG/TID PO; 480 MG/DAI
     Route: 048
     Dates: start: 20001221, end: 20001221
  16. SULFAMETHOXAZOLE AND TRIMETHOPRIM [Suspect]
     Indication: ALLERGENIC DESENSITISATION PROCEDURE
     Dosage: .06 GM/DAILY PO; .7 GM/DAILY PO; 0.8 GM/1X PO; 960 MG/AM PO; 480 MG/PM PO; 960 MG/TID PO; 480 MG/DAI
     Route: 048
     Dates: start: 20001222, end: 20001222
  17. SULFAMETHOXAZOLE AND TRIMETHOPRIM [Suspect]
     Indication: ALLERGENIC DESENSITISATION PROCEDURE
     Dosage: .06 GM/DAILY PO; .7 GM/DAILY PO; 0.8 GM/1X PO; 960 MG/AM PO; 480 MG/PM PO; 960 MG/TID PO; 480 MG/DAI
     Route: 048
     Dates: start: 20001222, end: 20001222
  18. SULFAMETHOXAZOLE AND TRIMETHOPRIM [Suspect]
     Indication: ALLERGENIC DESENSITISATION PROCEDURE
     Dosage: .06 GM/DAILY PO; .7 GM/DAILY PO; 0.8 GM/1X PO; 960 MG/AM PO; 480 MG/PM PO; 960 MG/TID PO; 480 MG/DAI
     Route: 048
     Dates: start: 20001222, end: 20001222
  19. SULFAMETHOXAZOLE AND TRIMETHOPRIM [Suspect]
     Indication: ALLERGENIC DESENSITISATION PROCEDURE
     Dosage: .06 GM/DAILY PO; .7 GM/DAILY PO; 0.8 GM/1X PO; 960 MG/AM PO; 480 MG/PM PO; 960 MG/TID PO; 480 MG/DAI
     Route: 048
     Dates: start: 20001223, end: 20010112
  20. SULFAMETHOXAZOLE AND TRIMETHOPRIM [Suspect]
     Indication: ALLERGENIC DESENSITISATION PROCEDURE
     Dosage: .06 GM/DAILY PO; .7 GM/DAILY PO; 0.8 GM/1X PO; 960 MG/AM PO; 480 MG/PM PO; 960 MG/TID PO; 480 MG/DAI
     Route: 048
     Dates: start: 20010113, end: 20020319
  21. FOSCAVIR [Suspect]
     Indication: CYTOMEGALOVIRUS INFECTION
     Dosage: 180 MG/KG/DAILY IV; 90 MG/KG/DAILY IV; 98 MG/KG/DAILY IV; 65 MG/KG/DAILY IV
     Route: 042
     Dates: start: 20000125, end: 20000214
  22. FOSCAVIR [Suspect]
     Indication: CYTOMEGALOVIRUS INFECTION
     Dosage: 180 MG/KG/DAILY IV; 90 MG/KG/DAILY IV; 98 MG/KG/DAILY IV; 65 MG/KG/DAILY IV
     Route: 042
     Dates: start: 20000215, end: 20000303
  23. FOSCAVIR [Suspect]
     Indication: CYTOMEGALOVIRUS INFECTION
     Dosage: 180 MG/KG/DAILY IV; 90 MG/KG/DAILY IV; 98 MG/KG/DAILY IV; 65 MG/KG/DAILY IV
     Route: 042
     Dates: start: 20000404, end: 20000406
  24. FOSCAVIR [Suspect]
     Indication: CYTOMEGALOVIRUS INFECTION
     Dosage: 180 MG/KG/DAILY IV; 90 MG/KG/DAILY IV; 98 MG/KG/DAILY IV; 65 MG/KG/DAILY IV
     Route: 042
     Dates: start: 20000407, end: 20000426
  25. LACTEC D [Concomitant]
  26. SOLITA T-3 [Concomitant]
  27. CIPROFLOXACIN HYDROCHLORIDE [Concomitant]
  28. DEXTROSE [Concomitant]
  29. HYDROCORTISONE [Concomitant]
  30. HYDROCORTISONE SODIUM PHOSPHATE [Concomitant]
  31. HYDROXYZINE [Concomitant]
  32. LAMIVUDINE [Concomitant]
  33. MORPHINE HCL [Concomitant]
  34. PREDNISOLONE [Concomitant]
  35. RIFAMIPIN [Concomitant]
  36. ROXITHROMYCIN [Concomitant]
  37. ZIDOVUDINE [Concomitant]

REACTIONS (17)
  - ANOREXIA [None]
  - BLOOD ALKALINE PHOSPHATASE INCREASED [None]
  - BLOOD CHLORIDE DECREASED [None]
  - BLOOD CHOLESTEROL INCREASED [None]
  - BLOOD PHOSPHORUS DECREASED [None]
  - BLOOD SODIUM DECREASED [None]
  - CALCULUS URINARY [None]
  - CREATININE RENAL CLEARANCE DECREASED [None]
  - CREATININE RENAL CLEARANCE INCREASED [None]
  - DIZZINESS [None]
  - ELECTROLYTE IMBALANCE [None]
  - GAMMA-GLUTAMYLTRANSFERASE INCREASED [None]
  - HIV WASTING SYNDROME [None]
  - HYPERLIPIDAEMIA [None]
  - MYCOBACTERIUM AVIUM COMPLEX INFECTION [None]
  - NAUSEA [None]
  - VOMITING [None]
